FAERS Safety Report 13733656 (Version 1)
Quarter: 2017Q3

REPORT INFORMATION
  Report Type: Spontaneous
  Country: ZA (occurrence: ZA)
  Receive Date: 20170707
  Receipt Date: 20170707
  Transmission Date: 20171127
  Serious: Yes (Death, Hospitalization, Other)
  Sender: FDA-Public Use
  Company Number: ZA-MYLANLABS-2017M1039851

PATIENT

DRUGS (8)
  1. CARLOC [Suspect]
     Active Substance: CARVEDILOL
     Indication: HYPERTENSION
     Dosage: UNK
     Route: 048
  2. ARTHREXIN [Suspect]
     Active Substance: INDOMETHACIN
     Indication: PAIN
     Dosage: UNK
     Route: 048
  3. ASPIRIN CARDIO [Suspect]
     Active Substance: ASPIRIN
     Dosage: UNK
     Route: 048
  4. ASPAVOR [Suspect]
     Active Substance: ATORVASTATIN
     Indication: HYPERCHOLESTEROLAEMIA
     Dosage: UNK
     Route: 048
  5. FUROSEMIDE MYLAN [Suspect]
     Active Substance: FUROSEMIDE
     Indication: HYPERTENSION
     Dosage: UNK
     Route: 048
  6. SPIRACTIN [Suspect]
     Active Substance: SPIRONOLACTONE
     Indication: HYPERTENSION
     Dosage: UNK
     Route: 048
  7. ARTHREXIN [Suspect]
     Active Substance: INDOMETHACIN
     Indication: INFLAMMATION
  8. PURGOXIN [Suspect]
     Active Substance: DIGOXIN
     Indication: CARDIAC FAILURE
     Dosage: UNK
     Route: 048

REACTIONS (2)
  - Cardiac arrest [Fatal]
  - Cerebrovascular accident [Unknown]

NARRATIVE: CASE EVENT DATE: 20170412
